FAERS Safety Report 16869855 (Version 1)
Quarter: 2019Q3

REPORT INFORMATION
  Report Type: Report from Study
  Country: IT (occurrence: IT)
  Receive Date: 20190930
  Receipt Date: 20190930
  Transmission Date: 20191005
  Serious: Yes (Other)
  Sender: FDA-Public Use
  Company Number: IT-MYLANLABS-2019M1090255

PATIENT
  Age: 74 Year
  Sex: Female

DRUGS (7)
  1. SERTRALINA MYLAN [Concomitant]
     Active Substance: SERTRALINE HYDROCHLORIDE
     Dosage: 1 DOSAGE FORM, QD
     Route: 048
  2. FLUNOX [Concomitant]
     Active Substance: FLURAZEPAM HYDROCHLORIDE
     Dosage: 1 DOSAGE FORM, QD
  3. METFORMINA MYLAN [Concomitant]
     Active Substance: METFORMIN HYDROCHLORIDE
     Dosage: 1 DOSAGE FORM, QD
  4. LORAZEPAM. [Concomitant]
     Active Substance: LORAZEPAM
     Dosage: 1 DOSAGE FORM, QD
  5. LOSARTAN MYLAN GENERICS 50 MG COMPRESSA RIVESTITA CON FILM [Suspect]
     Active Substance: LOSARTAN
     Indication: HYPERTENSION
     Dosage: 1 DOSAGE FORM, QD
     Route: 048
     Dates: start: 20180314, end: 20190314
  6. NEBIVOLOLO EG [Concomitant]
     Dosage: 1 DOSAGE FORM, QD
  7. QUETIAPINA AUROBINDO [Concomitant]
     Active Substance: QUETIAPINE FUMARATE
     Dosage: 1 DOSAGE FORM, QD

REACTIONS (2)
  - Hypertension [Unknown]
  - Drug ineffective [Unknown]

NARRATIVE: CASE EVENT DATE: 20190313
